FAERS Safety Report 23630343 (Version 3)
Quarter: 2024Q4

REPORT INFORMATION
  Report Type: Spontaneous
  Country: US (occurrence: US)
  Receive Date: 20240314
  Receipt Date: 20241006
  Transmission Date: 20250115
  Serious: Yes (Hospitalization)
  Sender: DR REDDYS
  Company Number: US-DRL-USA-SPO/USA/24/0003685

PATIENT
  Age: 14 Year
  Sex: Male

DRUGS (1)
  1. CLOZAPINE [Suspect]
     Active Substance: CLOZAPINE
     Indication: Product used for unknown indication
     Dosage: SHE STATED HE IS ON CLOZAPINE 50MG AT 2:00AM, 8:00AM AND 12 NOON, AND 4:30 IN THE AFTERNOON
     Route: 048

REACTIONS (3)
  - Hospitalisation [Unknown]
  - Neutrophil count normal [Unknown]
  - No adverse event [Unknown]

NARRATIVE: CASE EVENT DATE: 20240814
